FAERS Safety Report 20632455 (Version 1)
Quarter: 2022Q1

REPORT INFORMATION
  Report Type: Spontaneous
  Country: US (occurrence: None)
  Receive Date: 20220324
  Receipt Date: 20220324
  Transmission Date: 20220423
  Serious: No
  Sender: FDA-Public Use
  Company Number: None

PATIENT

DRUGS (2)
  1. HURRICAINE [Suspect]
     Active Substance: BENZOCAINE
     Route: 048
  2. AMERICAINE [Suspect]
     Active Substance: BENZOCAINE
     Route: 061

REACTIONS (4)
  - Product dispensing error [None]
  - Incorrect route of product administration [None]
  - Application site pain [None]
  - Wrong product stored [None]
